FAERS Safety Report 25940514 (Version 2)
Quarter: 2025Q4

REPORT INFORMATION
  Report Type: Report from Study
  Country: KR (occurrence: KR)
  Receive Date: 20251020
  Receipt Date: 20251103
  Transmission Date: 20260117
  Serious: Yes (Hospitalization, Other)
  Sender: ABBVIE
  Company Number: KR-ABBVIE-6506028

PATIENT
  Age: 61 Year
  Sex: Male
  Weight: 80 kg

DRUGS (10)
  1. RINVOQ [Suspect]
     Active Substance: UPADACITINIB
     Indication: Colitis ulcerative
     Dosage: MODIFIED-RELEASE FILM-COATED TABLET
     Route: 048
     Dates: start: 20241226
  2. RINVOQ [Suspect]
     Active Substance: UPADACITINIB
     Indication: Colitis ulcerative
     Dosage: MODIFIED-RELEASE FILM-COATED TABLET
     Route: 048
     Dates: start: 20240912, end: 20241226
  3. PENTASA [Concomitant]
     Active Substance: MESALAMINE
     Indication: Colitis ulcerative
     Dosage: FORM STRENGTH 1G
     Route: 054
     Dates: start: 20240820
  4. ASACOL [Concomitant]
     Active Substance: MESALAMINE
     Indication: Colitis ulcerative
     Dosage: FORM STRENGTH 500MG
     Route: 054
     Dates: start: 20250325, end: 20250422
  5. IRBESARTAN [Concomitant]
     Active Substance: IRBESARTAN
     Indication: Hypertension
     Dosage: FORM STRENGTH 150MG
     Route: 048
     Dates: start: 20250319, end: 20250321
  6. IRBESARTAN [Concomitant]
     Active Substance: IRBESARTAN
     Indication: Hypertension
     Dosage: FORM STRENGTH 150MG
     Route: 048
     Dates: start: 20250317, end: 20250317
  7. MESALAMINE [Concomitant]
     Active Substance: MESALAMINE
     Indication: Colitis ulcerative
     Dosage: FORM STRENGTH 1200MG
     Route: 048
     Dates: start: 20240820
  8. Rovelito [Concomitant]
     Indication: Hypertension
     Dosage: FORM STRENGTH150/20MG
     Route: 048
     Dates: start: 20250520
  9. LIPITOR [Concomitant]
     Active Substance: ATORVASTATIN CALCIUM
     Indication: Cardiovascular event prophylaxis
     Dosage: FORM STRENGTH 10MG
     Route: 048
     Dates: start: 20250317, end: 20250317
  10. LIPITOR [Concomitant]
     Active Substance: ATORVASTATIN CALCIUM
     Indication: Cardiovascular event prophylaxis
     Dosage: FORM STRENGTH 10MG
     Route: 048
     Dates: start: 20250319, end: 20250321

REACTIONS (5)
  - Myelopathy [Recovered/Resolved]
  - Acute kidney injury [Recovering/Resolving]
  - Chronic kidney disease [Recovering/Resolving]
  - Intervertebral disc disorder [Recovered/Resolved]
  - Impaired fasting glucose [Recovering/Resolving]

NARRATIVE: CASE EVENT DATE: 20250220
